FAERS Safety Report 6940493-9 (Version None)
Quarter: 2010Q3

REPORT INFORMATION
  Report Type: 
  Country: None (occurrence: None)
  Receive Date: 20100825
  Receipt Date: 20100820
  Transmission Date: 20110219
  Serious: Yes (Hospitalization, Other)
  Sender: FDA-Public Use
  Company Number: BR-SANOFI-AVENTIS-2010SA049736

PATIENT
  Age: 0 Day
  Sex: Female
  Weight: 3.5 kg

DRUGS (1)
  1. LANTUS [Suspect]
     Route: 064
     Dates: start: 20091025

REACTIONS (3)
  - DRUG EXPOSURE DURING PREGNANCY [None]
  - HYPOGLYCAEMIA NEONATAL [None]
  - RESPIRATORY DISORDER [None]
